FAERS Safety Report 8967013 (Version 8)
Quarter: 2013Q3

REPORT INFORMATION
  Report Type: Report from Study
  Country: US (occurrence: US)
  Receive Date: 20121217
  Receipt Date: 20130916
  Transmission Date: 20140515
  Serious: Yes (Hospitalization, Other)
  Sender: FDA-Public Use
  Company Number: US-ACTELION-A-NJ2012-74954

PATIENT
  Age: 55 Year
  Sex: Female

DRUGS (19)
  1. VENTAVIS [Suspect]
     Indication: PORTOPULMONARY HYPERTENSION
     Dosage: 5 MCG, UNK
     Route: 055
     Dates: start: 2012, end: 2012
  2. VENTAVIS [Suspect]
     Dosage: 2.5 MCG, UNK
     Route: 055
     Dates: start: 20121112
  3. VENTAVIS [Suspect]
     Dosage: UNK
     Route: 055
     Dates: start: 2012
  4. VENTAVIS [Suspect]
     Dosage: 5 MCG
     Route: 055
     Dates: start: 20130122, end: 201301
  5. VENTAVIS [Suspect]
     Dosage: 2.5 MCG, 6 TIMES DAILY
     Route: 055
     Dates: start: 201301, end: 201306
  6. SILDENAFIL [Concomitant]
     Dosage: 20 MG, TID
  7. FOLTX [Concomitant]
     Dosage: 2.5 - 25-2 MG, 2 TABLETS EVERY DAY
     Route: 048
  8. OXYCODONE [Concomitant]
     Dosage: 5 MG, EVERY 4 - 6 HOURS AS NEEDED
  9. PHENYTOIN [Concomitant]
     Dosage: 100 MG, TID
     Route: 048
  10. PROPRANOLOL [Concomitant]
     Dosage: 10 MG, TID
     Route: 048
  11. OMEPRAZOLE [Concomitant]
     Dosage: 20 MG, QD
     Route: 048
  12. VITAMIN E [Concomitant]
     Dosage: 400 U, BID
  13. PIOGLITAZONE [Concomitant]
     Dosage: 15 MG, QD
     Route: 048
  14. LEVOTHYROXINE [Concomitant]
     Dosage: 88 MCG, QD
  15. VITAMIN D [Concomitant]
     Dosage: 50000 U, WEEKLY
  16. SPIRONOLACTONE [Concomitant]
     Dosage: 100 MG, QAM
     Route: 048
  17. LASIX [Concomitant]
     Dosage: 20 MG, PRN
  18. OXYGEN [Concomitant]
     Dosage: 2 L/MIN, PRN
  19. COUMADIN [Concomitant]
     Dosage: UNK
     Dates: end: 2013

REACTIONS (8)
  - Subdural haematoma [Unknown]
  - Blindness [Recovered/Resolved]
  - Migraine [Unknown]
  - Dizziness [Recovered/Resolved]
  - Nausea [Recovered/Resolved]
  - Flushing [Recovered/Resolved]
  - Cough [Unknown]
  - Dyspnoea exertional [Unknown]
